FAERS Safety Report 26083152 (Version 1)
Quarter: 2025Q4

REPORT INFORMATION
  Report Type: Spontaneous
  Country: MY (occurrence: MY)
  Receive Date: 20251124
  Receipt Date: 20251124
  Transmission Date: 20260117
  Serious: Yes (Other)
  Sender: PFIZER
  Company Number: MY-PFIZER INC-202500226645

PATIENT
  Age: 25 Year
  Sex: Male

DRUGS (1)
  1. CIBINQO [Suspect]
     Active Substance: ABROCITINIB
     Indication: Dermatitis atopic
     Dosage: UNK
     Route: 048

REACTIONS (2)
  - Cataract [Unknown]
  - Retinal detachment [Unknown]
